FAERS Safety Report 5768160-8 (Version None)
Quarter: 2008Q2

REPORT INFORMATION
  Report Type: 
  Country: None (occurrence: None)
  Receive Date: 20080612
  Receipt Date: 20080609
  Transmission Date: 20081010
  Serious: Yes (Hospitalization)
  Sender: FDA-Public Use
  Company Number: US-ABBOTT-08P-163-0456099-00

PATIENT
  Sex: Female
  Weight: 52.21 kg

DRUGS (3)
  1. VICODIN [Suspect]
     Indication: PAIN
     Dates: start: 20080501
  2. PREGABALIN [Suspect]
     Indication: PAIN
     Dates: start: 20080519
  3. UNSPECIFIED DRUG [Concomitant]
     Indication: DRUG USE FOR UNKNOWN INDICATION

REACTIONS (4)
  - BLOOD PRESSURE INCREASED [None]
  - DRUG INTERACTION [None]
  - MALAISE [None]
  - VOMITING [None]
